FAERS Safety Report 21341795 (Version 2)
Quarter: 2023Q2

REPORT INFORMATION
  Report Type: Spontaneous
  Country: US (occurrence: US)
  Receive Date: 20220916
  Receipt Date: 20230516
  Transmission Date: 20230721
  Serious: No
  Sender: FDA-Public Use
  Company Number: US-SA-SAC20220915000250

PATIENT
  Age: 59 Year
  Sex: Female

DRUGS (4)
  1. AUBAGIO [Suspect]
     Active Substance: TERIFLUNOMIDE
     Indication: Multiple sclerosis
     Dosage: 0.5 DF, QD
     Route: 048
     Dates: start: 202208, end: 20220910
  2. AUBAGIO [Suspect]
     Active Substance: TERIFLUNOMIDE
     Dosage: 1 DF, QD
     Route: 048
     Dates: start: 20220911
  3. GLATOPA [Concomitant]
     Active Substance: GLATIRAMER ACETATE
     Dosage: UNK
     Route: 065
  4. COPAXONE [Concomitant]
     Active Substance: GLATIRAMER ACETATE
     Dosage: UNK
     Route: 065

REACTIONS (5)
  - Malaise [Unknown]
  - Anosmia [Not Recovered/Not Resolved]
  - Weight increased [Unknown]
  - Ageusia [Unknown]
  - Alopecia [Unknown]

NARRATIVE: CASE EVENT DATE: 20220911
